FAERS Safety Report 5022603-6 (Version None)
Quarter: 2006Q2

REPORT INFORMATION
  Report Type: 
  Country: None (occurrence: None)
  Receive Date: 20060605
  Receipt Date: 20060523
  Transmission Date: 20061013
  Serious: Yes (Hospitalization)
  Sender: FDA-Public Use
  Company Number: CH200601000978

PATIENT
  Age: 20 Year
  Sex: Male
  Weight: 96 kg

DRUGS (2)
  1. ZYPREXA [Suspect]
     Indication: SCHIZOPHRENIA
     Dosage: 15 MG, DAILY (1/D), 5MG AM, 10 MG, PRN, ORAL
     Route: 048
     Dates: start: 20031001, end: 20041101
  2. QUETIAPINE FUMARATE [Concomitant]

REACTIONS (3)
  - FACTOR II MUTATION [None]
  - PULMONARY EMBOLISM [None]
  - WEIGHT INCREASED [None]
